FAERS Safety Report 14879184 (Version 2)
Quarter: 2018Q2

REPORT INFORMATION
  Report Type: Spontaneous
  Country: BR (occurrence: BR)
  Receive Date: 20180511
  Receipt Date: 20180620
  Transmission Date: 20180711
  Serious: Yes (Other)
  Sender: FDA-Public Use
  Company Number: PHHY2018BR001940

PATIENT
  Sex: Female
  Weight: 65 kg

DRUGS (6)
  1. CONCOR [Concomitant]
     Active Substance: BISOPROLOL FUMARATE
     Indication: HYPERTENSION
  2. DIOVAN AMLO FIX [Suspect]
     Active Substance: AMLODIPINE\VALSARTAN
     Indication: ARRHYTHMIA
     Dosage: 1 DF, QD
     Route: 048
  3. DIOVAN AMLO FIX [Suspect]
     Active Substance: AMLODIPINE\VALSARTAN
     Indication: HYPERTENSION
  4. ASA [Concomitant]
     Active Substance: ASPIRIN
     Indication: HYPERTENSION
  5. ASA [Concomitant]
     Active Substance: ASPIRIN
     Indication: ARRHYTHMIA
     Dosage: 1 DF, QD
     Route: 065
  6. CONCOR [Concomitant]
     Active Substance: BISOPROLOL FUMARATE
     Indication: ARRHYTHMIA
     Dosage: 1 DF, QD
     Route: 065

REACTIONS (14)
  - Pain [Unknown]
  - Movement disorder [Unknown]
  - Tendon rupture [Unknown]
  - Nervousness [Unknown]
  - Femur fracture [Unknown]
  - Cardiovascular disorder [Unknown]
  - Diabetes mellitus [Recovering/Resolving]
  - Feeling abnormal [Unknown]
  - Muscle spasms [Unknown]
  - Condition aggravated [Unknown]
  - Fall [Recovered/Resolved]
  - Anxiety [Unknown]
  - Osteoarthritis [Unknown]
  - Osteoporosis [Unknown]
